FAERS Safety Report 8076280-0 (Version None)
Quarter: 2012Q1

REPORT INFORMATION
  Report Type: 
  Country: None (occurrence: None)
  Receive Date: 20120127
  Receipt Date: 20120113
  Transmission Date: 20120608
  Serious: Yes (Other)
  Sender: FDA-Public Use
  Company Number: AU-ROCHE-1030420

PATIENT
  Sex: Female

DRUGS (3)
  1. FUROSEMIDE [Concomitant]
  2. METOPROLOL TARTRATE [Concomitant]
  3. ACTEMRA [Suspect]
     Indication: RHEUMATOID ARTHRITIS

REACTIONS (8)
  - LETHARGY [None]
  - HYPERTENSION [None]
  - FATIGUE [None]
  - MALAISE [None]
  - SENSORY DISTURBANCE [None]
  - HEADACHE [None]
  - DIZZINESS [None]
  - OEDEMA PERIPHERAL [None]
